FAERS Safety Report 14532019 (Version 1)
Quarter: 2018Q1

REPORT INFORMATION
  Report Type: Spontaneous
  Country: US (occurrence: US)
  Receive Date: 20180214
  Receipt Date: 20180214
  Transmission Date: 20180509
  Serious: Yes (Other)
  Sender: FDA-Public Use
  Company Number: US-BAUSCH-BL-2018-003727

PATIENT
  Age: 28 Year
  Sex: Male

DRUGS (14)
  1. MEROPENEM. [Concomitant]
     Active Substance: MEROPENEM
     Indication: TUBERCULOMA OF CENTRAL NERVOUS SYSTEM
     Route: 042
  2. DEXAMETHASONE. [Suspect]
     Active Substance: DEXAMETHASONE
     Indication: BRAIN OEDEMA
     Dosage: 6 HOURS, LONG-TERM STEROID USE
     Route: 048
  3. BEDAQUILINE [Concomitant]
     Active Substance: BEDAQUILINE
     Indication: TUBERCULOSIS OF CENTRAL NERVOUS SYSTEM
     Dosage: LOADING DOSE
     Route: 048
  4. PYRAZINAMIDE. [Concomitant]
     Active Substance: PYRAZINAMIDE
     Indication: TUBERCULOMA OF CENTRAL NERVOUS SYSTEM
     Route: 048
  5. DEXAMETHASONE. [Suspect]
     Active Substance: DEXAMETHASONE
     Dosage: 24 HOURS, LONG-TERM STEROID USE
     Route: 048
  6. BEDAQUILINE [Concomitant]
     Active Substance: BEDAQUILINE
     Dosage: EVERY 3 WEEKS
     Route: 048
  7. DEXAMETHASONE. [Suspect]
     Active Substance: DEXAMETHASONE
     Dosage: EVERY OTHER DAY, LONG-TERM STEROID USE
     Route: 048
  8. PYRIDOXINE [Concomitant]
     Active Substance: PYRIDOXINE
     Indication: TUBERCULOMA OF CENTRAL NERVOUS SYSTEM
     Route: 065
  9. CAPREOMYCIN [Concomitant]
     Active Substance: CAPREOMYCIN
     Indication: TUBERCULOMA OF CENTRAL NERVOUS SYSTEM
     Route: 042
  10. MOXIFLOXACIN. [Concomitant]
     Active Substance: MOXIFLOXACIN
     Indication: TUBERCULOMA OF CENTRAL NERVOUS SYSTEM
     Route: 048
  11. AMOXICILLIN 500MG, CLAVULANATE 125MG [Concomitant]
     Indication: TUBERCULOMA OF CENTRAL NERVOUS SYSTEM
     Dosage: 500MG/125MG, EVERY 8 HOURS
     Route: 048
  12. DEXAMETHASONE. [Suspect]
     Active Substance: DEXAMETHASONE
     Dosage: LONG-TERM STEROID USE
     Route: 048
  13. LINEZOLID. [Concomitant]
     Active Substance: LINEZOLID
     Indication: TUBERCULOMA OF CENTRAL NERVOUS SYSTEM
     Route: 048
  14. ISONIAZID. [Concomitant]
     Active Substance: ISONIAZID
     Indication: TUBERCULOMA OF CENTRAL NERVOUS SYSTEM
     Route: 048

REACTIONS (5)
  - Fatigue [Unknown]
  - Toxicity to various agents [Unknown]
  - Weight increased [Unknown]
  - Osteonecrosis [Unknown]
  - General physical health deterioration [Unknown]
